FAERS Safety Report 4735573-2 (Version None)
Quarter: 2005Q3

REPORT INFORMATION
  Report Type: 
  Country: None (occurrence: None)
  Receive Date: 20050803
  Receipt Date: 20050714
  Transmission Date: 20060218
  Serious: Yes (Other)
  Sender: FDA-Public Use
  Company Number: TPA2005A00782

PATIENT
  Age: 64 Year
  Sex: Female
  Weight: 73.4827 kg

DRUGS (6)
  1. ACTOS [Suspect]
     Indication: DIABETES MELLITUS NON-INSULIN-DEPENDENT
     Dosage: 30 MG, 1 IN 1 D, PER ORAL
     Route: 048
     Dates: start: 20050501, end: 20050101
  2. ADVICOR [Suspect]
     Indication: BLOOD CHOLESTEROL
     Dosage: 500/20 MG, QHS, PER ORAL
     Route: 048
     Dates: start: 20050501, end: 20050101
  3. LEVOTHYROXINE SODIUM [Concomitant]
  4. ESTRACE [Concomitant]
  5. TOPROL-XL [Concomitant]
  6. COZAAR [Concomitant]

REACTIONS (3)
  - BLISTER [None]
  - SCAR [None]
  - SWELLING [None]
